FAERS Safety Report 9131010 (Version 2)
Quarter: 2013Q2

REPORT INFORMATION
  Report Type: Spontaneous
  Country: IT (occurrence: IT)
  Receive Date: 20130301
  Receipt Date: 20130416
  Transmission Date: 20140414
  Serious: Yes (Other)
  Sender: FDA-Public Use
  Company Number: IT-BRISTOL-MYERS SQUIBB COMPANY-17407537

PATIENT
  Age: 91 Year
  Sex: Female

DRUGS (5)
  1. SOTALOL HCL TABS 80 MG [Suspect]
     Indication: ARRHYTHMIA
     Route: 048
     Dates: start: 20080101, end: 20121220
  2. TRITTICO [Suspect]
     Indication: DEPRESSION
     Route: 048
     Dates: start: 20100101, end: 20121220
  3. ALMARYTM [Suspect]
     Indication: ARRHYTHMIA
     Route: 048
     Dates: start: 20080101, end: 20121220
  4. NORVASC [Concomitant]
  5. COAPROVEL [Concomitant]
     Dosage: IRBESARTAN+HCTZ: 300/12.5 MG TABS

REACTIONS (1)
  - Electrocardiogram QT prolonged [Unknown]
